FAERS Safety Report 7250886-0 (Version None)
Quarter: 2011Q1

REPORT INFORMATION
  Report Type: 
  Country: None (occurrence: None)
  Receive Date: 20110128
  Receipt Date: 20110121
  Transmission Date: 20110831
  Serious: Yes (Life-Threatening, Hospitalization, Other)
  Sender: FDA-Public Use
  Company Number: A0876107A

PATIENT
  Age: 80 Year
  Sex: Female
  Weight: 63.6 kg

DRUGS (5)
  1. LAMOTRIGINE [Suspect]
     Route: 048
     Dates: start: 20100705, end: 20100713
  2. PHENYTOIN [Suspect]
  3. KEPPRA [Suspect]
  4. NO CONCURRENT MEDICATION [Concomitant]
  5. LAMICTAL [Suspect]
     Dosage: 50MG TWICE PER DAY
     Route: 048
     Dates: start: 20090501

REACTIONS (13)
  - DRUG LEVEL DECREASED [None]
  - CONVULSION [None]
  - DRUG INEFFECTIVE [None]
  - MALAISE [None]
  - PNEUMONIA ASPIRATION [None]
  - ASPIRATION [None]
  - ANGIOGRAM CEREBRAL [None]
  - TOXICITY TO VARIOUS AGENTS [None]
  - DRUG INTOLERANCE [None]
  - LETHARGY [None]
  - MECHANICAL VENTILATION [None]
  - ANTICONVULSANT DRUG LEVEL DECREASED [None]
  - PNEUMONIA [None]
